FAERS Safety Report 9765757 (Version 1)
Quarter: 2013Q4

REPORT INFORMATION
  Report Type: Spontaneous
  Country: US (occurrence: US)
  Receive Date: 20131217
  Receipt Date: 20131217
  Transmission Date: 20140711
  Serious: No
  Sender: FDA-Public Use
  Company Number: US-GLAXOSMITHKLINE-A1011153A

PATIENT
  Age: 53 Year
  Sex: Male

DRUGS (2)
  1. VOTRIENT [Suspect]
     Indication: RENAL CANCER
     Dosage: 800MG PER DAY
     Route: 048
     Dates: start: 20130126
  2. GAS-X [Concomitant]

REACTIONS (6)
  - Rhinorrhoea [Unknown]
  - Nasopharyngitis [Unknown]
  - Dysphonia [Unknown]
  - Ill-defined disorder [Unknown]
  - Eructation [Unknown]
  - Hypophagia [Unknown]
